FAERS Safety Report 12431816 (Version 3)
Quarter: 2016Q2

REPORT INFORMATION
  Report Type: Spontaneous
  Country: US (occurrence: US)
  Receive Date: 20160603
  Receipt Date: 20160614
  Transmission Date: 20160815
  Serious: Yes (Other)
  Sender: FDA-Public Use
  Company Number: US-TEVA-658592ACC

PATIENT
  Sex: Female

DRUGS (1)
  1. PARAGARD T 380A [Suspect]
     Active Substance: COPPER
     Route: 065
     Dates: end: 20160502

REACTIONS (9)
  - Expired device used [Unknown]
  - Presyncope [Unknown]
  - Complication associated with device [Not Recovered/Not Resolved]
  - Pain [Unknown]
  - Depression [Unknown]
  - Syncope [Unknown]
  - Muscle spasms [Unknown]
  - Device breakage [Not Recovered/Not Resolved]
  - Abdominal pain upper [Unknown]
